FAERS Safety Report 4744545-3 (Version None)
Quarter: 2005Q3

REPORT INFORMATION
  Report Type: 
  Country: None (occurrence: None)
  Receive Date: 20050812
  Receipt Date: 20050802
  Transmission Date: 20060218
  Serious: Yes (Life-Threatening, Hospitalization)
  Sender: FDA-Public Use
  Company Number: DE-ABBOTT-05P-062-0307401-00

PATIENT
  Sex: Female
  Weight: 60 kg

DRUGS (1)
  1. BIAXIN [Suspect]
     Indication: ACUTE TONSILLITIS
     Route: 048
     Dates: start: 20050716, end: 20050720

REACTIONS (3)
  - LONG QT SYNDROME [None]
  - SYNCOPE [None]
  - TORSADE DE POINTES [None]
